FAERS Safety Report 22109417 (Version 2)
Quarter: 2023Q2

REPORT INFORMATION
  Report Type: Spontaneous
  Country: JP (occurrence: JP)
  Receive Date: 20230317
  Receipt Date: 20230420
  Transmission Date: 20230722
  Serious: Yes (Other)
  Sender: FDA-Public Use
  Company Number: JP-ELI_LILLY_AND_COMPANY-JP202303004522

PATIENT
  Age: 45 Year

DRUGS (2)
  1. CYRAMZA [Suspect]
     Active Substance: RAMUCIRUMAB
     Indication: Lung neoplasm malignant
     Dosage: 10 MG/KG, CYCLICAL
     Route: 041
     Dates: start: 202106
  2. IRESSA [Suspect]
     Active Substance: GEFITINIB
     Indication: Lung neoplasm malignant
     Dosage: 250 MG
     Route: 048
     Dates: start: 202106

REACTIONS (1)
  - Purpura [Recovered/Resolved]
